FAERS Safety Report 4590706-6 (Version None)
Quarter: 2005Q1

REPORT INFORMATION
  Report Type: 
  Country: None (occurrence: None)
  Receive Date: 20050224
  Receipt Date: 20031121
  Transmission Date: 20050727
  Serious: Yes (Hospitalization, Disabling, Other)
  Sender: FDA-Public Use
  Company Number: US-MERCK-0311USA02543

PATIENT
  Age: 49 Year
  Sex: Male
  Weight: 109 kg

DRUGS (9)
  1. VIOXX [Suspect]
     Indication: RHEUMATOID ARTHRITIS
     Route: 048
     Dates: start: 20001127
  2. VIOXX [Suspect]
     Route: 048
     Dates: start: 20010501, end: 20020201
  3. VIOXX [Suspect]
     Route: 048
     Dates: start: 20020201
  4. GLUCOPHAGE [Concomitant]
     Route: 065
  5. ZOCOR [Concomitant]
     Route: 048
     Dates: start: 20010101
  6. ARTHROTEC [Concomitant]
     Route: 065
     Dates: start: 20010101
  7. AVANDIA [Concomitant]
     Route: 065
     Dates: start: 20001127
  8. GLYNASE [Concomitant]
     Route: 065
     Dates: start: 20001127
  9. DARVOCET-N 100 [Concomitant]
     Route: 065

REACTIONS (100)
  - ADVERSE DRUG REACTION [None]
  - ANXIETY [None]
  - ARRHYTHMIA [None]
  - ARTHRALGIA [None]
  - ARTHROPOD BITE [None]
  - ASTHENIA [None]
  - BLINDNESS TRANSIENT [None]
  - BLOOD ALBUMIN INCREASED [None]
  - BLOOD CHOLESTEROL INCREASED [None]
  - BLOOD GLUCOSE INCREASED [None]
  - BLOOD IMMUNOGLOBULIN A INCREASED [None]
  - BLOOD IMMUNOGLOBULIN G INCREASED [None]
  - BLOOD TRIGLYCERIDES INCREASED [None]
  - BONE PAIN [None]
  - BRADYARRHYTHMIA [None]
  - CARDIOMEGALY [None]
  - CARDIOMYOPATHY [None]
  - CARPAL TUNNEL SYNDROME [None]
  - CEREBRAL ISCHAEMIA [None]
  - CEREBROVASCULAR ACCIDENT [None]
  - CHEST DISCOMFORT [None]
  - CHEST PAIN [None]
  - COMPLEX PARTIAL SEIZURES [None]
  - CONFUSIONAL STATE [None]
  - CONNECTIVE TISSUE DISORDER [None]
  - CORONARY ARTERY DISEASE [None]
  - CORONARY ARTERY STENOSIS [None]
  - CRANIAL NEUROPATHY [None]
  - CSF GLUCOSE INCREASED [None]
  - CSF PROTEIN INCREASED [None]
  - CSF TEST ABNORMAL [None]
  - DEMENTIA ALZHEIMER'S TYPE [None]
  - DEPRESSED MOOD [None]
  - DEPRESSION [None]
  - DIABETES MELLITUS NON-INSULIN-DEPENDENT [None]
  - DIABETIC FOOT INFECTION [None]
  - DIABETIC NEUROPATHY [None]
  - DIFFICULTY IN WALKING [None]
  - DILATATION ATRIAL [None]
  - DIPLOPIA [None]
  - DIZZINESS [None]
  - DYSPNOEA [None]
  - EAR PAIN [None]
  - EMOTIONAL DISTRESS [None]
  - ENCEPHALITIS [None]
  - EYELID PTOSIS [None]
  - FALL [None]
  - GLYCOSYLATED HAEMOGLOBIN INCREASED [None]
  - HAEMATURIA [None]
  - HEADACHE [None]
  - HIGH DENSITY LIPOPROTEIN DECREASED [None]
  - HOT FLUSH [None]
  - HYPERHIDROSIS [None]
  - HYPERLIPIDAEMIA [None]
  - HYPERTENSION [None]
  - HYPOAESTHESIA [None]
  - HYPOTONIA [None]
  - INGROWING NAIL [None]
  - INJURY [None]
  - INSOMNIA [None]
  - INTERVERTEBRAL DISC DEGENERATION [None]
  - LIMB DISCOMFORT [None]
  - LIMB INJURY [None]
  - LOCALISED INFECTION [None]
  - LOSS OF CONSCIOUSNESS [None]
  - MITRAL VALVE INCOMPETENCE [None]
  - MUSCLE SPASMS [None]
  - MUSCULOSKELETAL STIFFNESS [None]
  - MYALGIA [None]
  - MYOCARDIAL INFARCTION [None]
  - MYOCARDIAL ISCHAEMIA [None]
  - NERVE COMPRESSION [None]
  - NERVE INJURY [None]
  - NEUROPATHY [None]
  - ORTHOSTATIC HYPOTENSION [None]
  - OSTEOARTHRITIS [None]
  - PAIN [None]
  - PAIN IN EXTREMITY [None]
  - PARAESTHESIA [None]
  - PERIPHERAL SENSORY NEUROPATHY [None]
  - POLYNEUROPATHY [None]
  - PSEUDODEMENTIA [None]
  - PSYCHOMOTOR HYPERACTIVITY [None]
  - PSYCHOMOTOR RETARDATION [None]
  - RASH [None]
  - SENSATION OF PRESSURE [None]
  - SINOBRONCHITIS [None]
  - SLEEP APNOEA SYNDROME [None]
  - SOMNOLENCE [None]
  - SUPRAVENTRICULAR EXTRASYSTOLES [None]
  - SYNCOPE [None]
  - SYSTEMIC LUPUS ERYTHEMATOSUS [None]
  - TACHYARRHYTHMIA [None]
  - THERMAL BURN [None]
  - TRICUSPID VALVE INCOMPETENCE [None]
  - UPPER RESPIRATORY TRACT INFECTION [None]
  - VASCULITIS [None]
  - VENOUS ANGIOMA OF BRAIN [None]
  - VERTIGO [None]
  - VISION BLURRED [None]
